FAERS Safety Report 6240384-5 (Version None)
Quarter: 2009Q2

REPORT INFORMATION
  Report Type: 
  Country: None (occurrence: None)
  Receive Date: 20090623
  Receipt Date: 20080612
  Transmission Date: 20091009
  Serious: No
  Sender: FDA-Public Use
  Company Number: US-ASTRAZENECA-2008UW11851

PATIENT
  Age: 79 Year
  Sex: Female
  Weight: 63.5 kg

DRUGS (4)
  1. PULMICORT FLEXHALER [Suspect]
     Indication: ASTHMA
     Dosage: 180 UG, ONE INHALATION BID
     Route: 055
     Dates: start: 20080501
  2. HYZAAR [Concomitant]
  3. DILTIAZEM [Concomitant]
  4. SIMVASTATIN [Concomitant]

REACTIONS (3)
  - ALLERGY TO METALS [None]
  - CHAPPED LIPS [None]
  - CHEILITIS [None]
